FAERS Safety Report 15718629 (Version 3)
Quarter: 2019Q2

REPORT INFORMATION
  Report Type: Report from Study
  Country: PE (occurrence: PE)
  Receive Date: 20181213
  Receipt Date: 20190610
  Transmission Date: 20190711
  Serious: Yes (Other)
  Sender: FDA-Public Use
  Company Number: PE-SA-2018SA332907

PATIENT
  Age: 59 Year
  Sex: Female

DRUGS (1)
  1. LEFLUNOMIDE. [Suspect]
     Active Substance: LEFLUNOMIDE
     Indication: RHEUMATOID ARTHRITIS
     Dosage: 20 MG, QD
     Route: 048
     Dates: start: 1994, end: 201810

REACTIONS (2)
  - Arthralgia [Recovering/Resolving]
  - Endometrial cancer [Unknown]

NARRATIVE: CASE EVENT DATE: 201802
